FAERS Safety Report 21718976 (Version 2)
Quarter: 2023Q1

REPORT INFORMATION
  Report Type: Spontaneous
  Country: NO (occurrence: NO)
  Receive Date: 20221213
  Receipt Date: 20230102
  Transmission Date: 20230418
  Serious: Yes (Other)
  Sender: FDA-Public Use
  Company Number: None

PATIENT
  Age: 42 Year
  Sex: Female

DRUGS (7)
  1. ACETAMINOPHEN [Concomitant]
     Active Substance: ACETAMINOPHEN
     Indication: Product used for unknown indication
     Dosage: WHEN NEEDED
  2. EBASTINE [Concomitant]
     Active Substance: EBASTINE
     Indication: Product used for unknown indication
     Dosage: WHEN NEEDED
  3. CALCIUM CARBONATE\CHOLECALCIFEROL [Concomitant]
     Active Substance: CALCIUM CARBONATE\CHOLECALCIFEROL
     Indication: Osteoporosis
     Dosage: CONTINUED USE OF MEDICINAL PRODUCT
  4. MEDROL [Concomitant]
     Active Substance: METHYLPREDNISOLONE
     Indication: Myositis
     Dosage: CONTINUED USE OF MEDICINAL PRODUCT
  5. PANTOPRAZOLE [Concomitant]
     Active Substance: PANTOPRAZOLE
     Indication: Prophylaxis against gastrointestinal ulcer
     Dosage: 20 MG/40 MG; CONTINUED USE OF MEDICINAL PRODUCT
  6. MIRENA [Concomitant]
     Active Substance: LEVONORGESTREL
     Indication: Contraception
     Dosage: CONTINUED USE OF MEDICINAL PRODUCT
     Dates: start: 202102
  7. OCTAGAM IMMUNE GLOBULIN (HUMAN) [Suspect]
     Active Substance: HUMAN IMMUNOGLOBULIN G
     Indication: Myositis
     Dosage: 30 G IN COURSES OF 5 DAYS, PLANNED EVERY MONTH
     Route: 042
     Dates: start: 20220815, end: 20221014

REACTIONS (3)
  - Hepatitis B core antibody positive [Unknown]
  - Hepatitis B antibody positive [Unknown]
  - Hepatitis B core antibody positive [Unknown]

NARRATIVE: CASE EVENT DATE: 20220815
